FAERS Safety Report 19300067 (Version 3)
Quarter: 2021Q2

REPORT INFORMATION
  Report Type: Report from Study
  Country: CN (occurrence: CN)
  Receive Date: 20210525
  Receipt Date: 20210602
  Transmission Date: 20210717
  Serious: Yes (Other)
  Sender: FDA-Public Use
  Company Number: CN-JNJFOC-20210536596

PATIENT
  Age: 67 Year
  Sex: Female

DRUGS (17)
  1. RIVAROXABAN [Suspect]
     Active Substance: RIVAROXABAN
     Indication: PULMONARY EMBOLISM
     Dosage: 15 MG, QD
     Route: 048
     Dates: start: 20200707, end: 20200921
  2. RIVAROXABAN [Suspect]
     Active Substance: RIVAROXABAN
     Route: 048
  3. BUDESONIDE. [Concomitant]
     Active Substance: BUDESONIDE
     Indication: TARGETED CANCER THERAPY
     Dosage: 4 MG, QD
     Route: 055
     Dates: start: 20200703, end: 20200709
  4. FLUCONAZOLE AND SODIUM CHLORIDE [Concomitant]
     Active Substance: FLUCONAZOLE
     Dosage: 0.2 G, QD
     Dates: start: 20200703, end: 20200710
  5. POTASSIUM CHLORIDE. [Concomitant]
     Active Substance: POTASSIUM CHLORIDE
     Dosage: 6 G, QD
     Dates: start: 20200703, end: 20200707
  6. ENTERAL NUTRITIONAL SUSPENSION (TPF) [Concomitant]
     Dosage: UNK
     Dates: start: 20200703, end: 20200710
  7. KANG AI [Concomitant]
     Indication: TARGETED CANCER THERAPY
     Dosage: 60 ML, QD
     Dates: start: 20200703, end: 20200709
  8. ICOTINIB HYDROCHLORIDE [Concomitant]
     Active Substance: ICOTINIB HYDROCHLORIDE
     Indication: TARGETED CANCER THERAPY
     Dosage: 375 MG, QD
     Dates: start: 20200711
  9. LOW MOLECULAR WEIGHT HEPARIN [Concomitant]
     Active Substance: UNSPECIFIED INGREDIENT
     Dosage: 15000 XAIU
     Dates: start: 20200703, end: 20200707
  10. HUMAN ALBUMIN [Concomitant]
     Active Substance: ALBUMIN HUMAN
     Dosage: 20 G, QD
     Dates: start: 20200703, end: 20200707
  11. MEROPENEM. [Concomitant]
     Active Substance: MEROPENEM
     Dosage: 3 G, QD
     Route: 042
     Dates: start: 20200703, end: 20200710
  12. BUDESONIDE. [Concomitant]
     Active Substance: BUDESONIDE
     Indication: TARGETED CANCER THERAPY
     Dosage: 6 MG, QD
     Route: 055
     Dates: start: 20200624, end: 20200703
  13. IRBESARTAN AND HYDROCHLOROTHIAZIDE [Concomitant]
     Active Substance: HYDROCHLOROTHIAZIDE\IRBESARTAN
     Dosage: UNK
     Dates: start: 20200704, end: 20200710
  14. CONMANA [Concomitant]
     Active Substance: ICOTINIB
     Indication: TARGETED CANCER THERAPY
     Dosage: 125 MG, TID
     Route: 048
     Dates: start: 20200711
  15. OMEPRAZOLE SODIUM [Concomitant]
     Active Substance: OMEPRAZOLE SODIUM
     Indication: TARGETED CANCER THERAPY
     Dosage: 80 MG, QD
     Dates: start: 20200703, end: 20200709
  16. AMBROXOL HYDROCHLORIDE [Concomitant]
     Active Substance: AMBROXOL HYDROCHLORIDE
     Dosage: 30 MG, QD
     Dates: start: 20200703, end: 20200710
  17. SALVIANOLATE [Concomitant]
     Active Substance: HERBALS
     Dosage: 200 MG, QD
     Dates: start: 20200703, end: 20200709

REACTIONS (1)
  - Renal failure [Unknown]

NARRATIVE: CASE EVENT DATE: 20200921
